FAERS Safety Report 7012917-2 (Version None)
Quarter: 2010Q3

REPORT INFORMATION
  Report Type: 
  Country: None (occurrence: None)
  Receive Date: 20100924
  Receipt Date: 20100913
  Transmission Date: 20110219
  Serious: Yes (Hospitalization)
  Sender: FDA-Public Use
  Company Number: FR-PFIZER INC-2010115053

PATIENT
  Age: 68 Year
  Sex: Female

DRUGS (6)
  1. ARACYTINE [Suspect]
     Dosage: UNK
     Route: 042
     Dates: start: 20100804, end: 20100810
  2. ZAVEDOS [Suspect]
     Dosage: DAY 1, DAY 2 AND DAY 3
     Route: 048
     Dates: start: 20100804, end: 20100808
  3. VESANOID [Suspect]
     Dosage: 70 MG
     Route: 048
     Dates: start: 20100804, end: 20100808
  4. TRAMADOL HCL [Concomitant]
  5. ALPRAZOLAM [Concomitant]
  6. ZYLORIC ^FAES^ [Concomitant]

REACTIONS (7)
  - OEDEMA PERIPHERAL [None]
  - OXYGEN SATURATION DECREASED [None]
  - PERICARDIAL EFFUSION [None]
  - PLEURAL EFFUSION [None]
  - PYREXIA [None]
  - RENAL FAILURE [None]
  - WEIGHT INCREASED [None]
